FAERS Safety Report 21421937 (Version 1)
Quarter: 2022Q4

REPORT INFORMATION
  Report Type: Spontaneous
  Country: US (occurrence: US)
  Receive Date: 20221007
  Receipt Date: 20221007
  Transmission Date: 20230112
  Serious: Yes (Other)
  Sender: FDA-Public Use
  Company Number: US-SUN PHARMACEUTICAL INDUSTRIES LTD-2022R1-357612

PATIENT
  Age: 72 Year
  Sex: Female

DRUGS (1)
  1. IMIPRAMINE [Suspect]
     Active Substance: IMIPRAMINE
     Indication: Generalised anxiety disorder
     Dosage: 250 MG
     Route: 065

REACTIONS (1)
  - Skin hyperpigmentation [Recovered/Resolved]
